FAERS Safety Report 25961933 (Version 1)
Quarter: 2025Q4

REPORT INFORMATION
  Report Type: Report from Study
  Country: US (occurrence: US)
  Receive Date: 20251027
  Receipt Date: 20251027
  Transmission Date: 20260117
  Serious: Yes (Life-Threatening, Hospitalization)
  Sender: MYLAN
  Company Number: US-MYLANLABS-2025M1088908

PATIENT
  Age: 67 Year
  Sex: Male

DRUGS (24)
  1. VECURONIUM [Suspect]
     Active Substance: VECURONIUM BROMIDE
     Indication: Intracranial pressure increased
     Dosage: UNK, PUSHES
  2. VECURONIUM [Suspect]
     Active Substance: VECURONIUM BROMIDE
     Dosage: UNK, PUSHES
     Route: 065
  3. VECURONIUM [Suspect]
     Active Substance: VECURONIUM BROMIDE
     Dosage: UNK, PUSHES
     Route: 065
  4. VECURONIUM [Suspect]
     Active Substance: VECURONIUM BROMIDE
     Dosage: UNK, PUSHES
  5. SODIUM CHLORIDE [Suspect]
     Active Substance: SODIUM CHLORIDE
     Indication: Intracranial pressure increased
     Dosage: 30 MILLILITER, QH, DRIP; SEVERAL BOLUSES
  6. SODIUM CHLORIDE [Suspect]
     Active Substance: SODIUM CHLORIDE
     Dosage: 30 MILLILITER, QH, DRIP; SEVERAL BOLUSES
     Route: 065
  7. SODIUM CHLORIDE [Suspect]
     Active Substance: SODIUM CHLORIDE
     Dosage: 30 MILLILITER, QH, DRIP; SEVERAL BOLUSES
     Route: 065
  8. SODIUM CHLORIDE [Suspect]
     Active Substance: SODIUM CHLORIDE
     Dosage: 30 MILLILITER, QH, DRIP; SEVERAL BOLUSES
  9. FENTANYL [Suspect]
     Active Substance: FENTANYL
     Indication: Intracranial pressure increased
     Dosage: 200 MICROGRAM, QH, DRIP
  10. FENTANYL [Suspect]
     Active Substance: FENTANYL
     Dosage: 200 MICROGRAM, QH, DRIP
     Route: 065
  11. FENTANYL [Suspect]
     Active Substance: FENTANYL
     Dosage: 200 MICROGRAM, QH, DRIP
     Route: 065
  12. FENTANYL [Suspect]
     Active Substance: FENTANYL
     Dosage: 200 MICROGRAM, QH, DRIP
  13. VERSED [Suspect]
     Active Substance: MIDAZOLAM HYDROCHLORIDE
     Indication: Intracranial pressure increased
     Dosage: 10 MILLIGRAM, QH, DRIP
  14. VERSED [Suspect]
     Active Substance: MIDAZOLAM HYDROCHLORIDE
     Dosage: 10 MILLIGRAM, QH, DRIP
     Route: 065
  15. VERSED [Suspect]
     Active Substance: MIDAZOLAM HYDROCHLORIDE
     Dosage: 10 MILLIGRAM, QH, DRIP
     Route: 065
  16. VERSED [Suspect]
     Active Substance: MIDAZOLAM HYDROCHLORIDE
     Dosage: 10 MILLIGRAM, QH, DRIP
  17. KETAMINE [Suspect]
     Active Substance: KETAMINE
     Indication: Intracranial pressure increased
     Dosage: 40 MILLIGRAM, QH, DRIP
  18. KETAMINE [Suspect]
     Active Substance: KETAMINE
     Dosage: 40 MILLIGRAM, QH, DRIP
     Route: 065
  19. KETAMINE [Suspect]
     Active Substance: KETAMINE
     Dosage: 40 MILLIGRAM, QH, DRIP
     Route: 065
  20. KETAMINE [Suspect]
     Active Substance: KETAMINE
     Dosage: 40 MILLIGRAM, QH, DRIP
  21. PROPOFOL [Suspect]
     Active Substance: PROPOFOL
     Indication: Intracranial pressure increased
     Dosage: 50 MICROGRAM/KILOGRAM, QMINUTE, DRIP
  22. PROPOFOL [Suspect]
     Active Substance: PROPOFOL
     Dosage: 50 MICROGRAM/KILOGRAM, QMINUTE, DRIP
     Route: 065
  23. PROPOFOL [Suspect]
     Active Substance: PROPOFOL
     Dosage: 50 MICROGRAM/KILOGRAM, QMINUTE, DRIP
     Route: 065
  24. PROPOFOL [Suspect]
     Active Substance: PROPOFOL
     Dosage: 50 MICROGRAM/KILOGRAM, QMINUTE, DRIP

REACTIONS (1)
  - Drug ineffective [Unknown]
